FAERS Safety Report 7146606-0 (Version None)
Quarter: 2010Q4

REPORT INFORMATION
  Report Type: 
  Country: None (occurrence: None)
  Receive Date: 20101208
  Receipt Date: 20101109
  Transmission Date: 20110411
  Serious: No
  Sender: FDA-Public Use
  Company Number: US-PFIZER INC-2010148528

PATIENT
  Age: 69 Year
  Sex: Female
  Weight: 145 kg

DRUGS (1)
  1. ADVIL [Suspect]
     Dosage: 6 TO 12 CAPSULES DAILY
     Route: 048
     Dates: start: 20090101

REACTIONS (1)
  - ABDOMINAL PAIN UPPER [None]
